FAERS Safety Report 26057014 (Version 2)
Quarter: 2025Q4

REPORT INFORMATION
  Report Type: Report from Study
  Country: CA (occurrence: CA)
  Receive Date: 20251118
  Receipt Date: 20251121
  Transmission Date: 20260117
  Serious: Yes (Other)
  Sender: ABBVIE
  Company Number: CA-ABBVIE-6548699

PATIENT
  Sex: Male

DRUGS (2)
  1. SKYRIZI [Suspect]
     Active Substance: RISANKIZUMAB-RZAA
     Indication: Crohn^s disease
     Route: 058
  2. SKYRIZI [Suspect]
     Active Substance: RISANKIZUMAB-RZAA
     Route: 058

REACTIONS (10)
  - Loss of consciousness [Recovering/Resolving]
  - Sputum discoloured [Unknown]
  - Speech disorder [Recovering/Resolving]
  - Nausea [Recovering/Resolving]
  - Tremor [Recovering/Resolving]
  - Hyperhidrosis [Recovering/Resolving]
  - Dizziness [Recovering/Resolving]
  - Confusional state [Unknown]
  - Presyncope [Unknown]
  - Nasopharyngitis [Unknown]
